FAERS Safety Report 25869799 (Version 4)
Quarter: 2025Q4

REPORT INFORMATION
  Report Type: Report from Study
  Country: US (occurrence: US)
  Receive Date: 20251001
  Receipt Date: 20251210
  Transmission Date: 20260118
  Serious: Yes (Other)
  Sender: ABBVIE
  Company Number: US-ABBVIE-6480308

PATIENT
  Age: 73 Year
  Sex: Male

DRUGS (13)
  1. CREON [Suspect]
     Active Substance: PANCRELIPASE AMYLASE\PANCRELIPASE LIPASE\PANCRELIPASE PROTEASE
     Indication: Pancreatitis chronic
     Dosage: 36,000 UNIT?1 CAPSULE 3 TIMES DAILY WITH FOOD?END DATE 2025
     Route: 048
     Dates: start: 20250408
  2. CREON [Suspect]
     Active Substance: PANCRELIPASE AMYLASE\PANCRELIPASE LIPASE\PANCRELIPASE PROTEASE
     Indication: Pancreatitis chronic
     Dosage: 36,000 UNIT?1 CAPSULE 3 TIMES DAILY WITH FOOD
     Route: 048
     Dates: start: 2025
  3. CREON [Suspect]
     Active Substance: PANCRELIPASE AMYLASE\PANCRELIPASE LIPASE\PANCRELIPASE PROTEASE
     Indication: Pancreatitis chronic
     Dosage: 36,000 UNIT, 1 CAPSULE 3 TIMES DAILY WITH FOOD, END DATE 2025
     Route: 048
     Dates: start: 20250606
  4. METFORMIN [Concomitant]
     Active Substance: METFORMIN HYDROCHLORIDE
     Indication: Product used for unknown indication
     Route: 065
  5. VITAMIN D3 [Concomitant]
     Active Substance: CHOLECALCIFEROL
     Indication: Product used for unknown indication
     Dosage: 125 MCG ONE PER DAY
  6. VITAMIN K [Concomitant]
     Active Substance: PHYTONADIONE
     Indication: Product used for unknown indication
  7. ALPHA LIPOIC ACID [Concomitant]
     Active Substance: .ALPHA.-LIPOIC ACID
     Indication: Product used for unknown indication
     Dosage: 600 MG TWO PER DAY
  8. MUCINEX [Concomitant]
     Active Substance: GUAIFENESIN
     Indication: Product used for unknown indication
     Dosage: 1200 MG TAKE WHEN NEEDED
  9. VITAMIN C [Concomitant]
     Active Substance: ASCORBIC ACID
     Indication: Product used for unknown indication
  10. CALCIUM [Concomitant]
     Active Substance: CALCIUM
     Indication: Product used for unknown indication
     Dosage: 500 MG ONCE PER DAY TAKE 2 HOURS AFTER GLIMPERIDE
  11. VITAMIN A [Concomitant]
     Active Substance: VITAMIN A
     Indication: Product used for unknown indication
  12. VITAMIN B12 [Concomitant]
     Active Substance: CYANOCOBALAMIN
     Indication: Product used for unknown indication
  13. VITAMIN E [Concomitant]
     Active Substance: .ALPHA.-TOCOPHEROL
     Indication: Product used for unknown indication
     Dosage: 180 MG ONCE PER DAY

REACTIONS (56)
  - Pancreatic failure [Unknown]
  - Flatulence [Recovered/Resolved]
  - Constipation [Recovered/Resolved]
  - Diarrhoea [Recovered/Resolved]
  - Abdominal distension [Recovered/Resolved]
  - Product label issue [Unknown]
  - Chronic obstructive pulmonary disease [Unknown]
  - Dyspnoea [Unknown]
  - Gait disturbance [Unknown]
  - Heart rate increased [Unknown]
  - Oxygen saturation decreased [Unknown]
  - Secretion discharge [Unknown]
  - Mass [Unknown]
  - Umbilical hernia [Unknown]
  - Lymphoedema [Recovering/Resolving]
  - Erosive oesophagitis [Unknown]
  - Insomnia [Unknown]
  - Pancreatitis chronic [Unknown]
  - Blood disorder [Unknown]
  - Diverticulum intestinal [Unknown]
  - Pain in extremity [Unknown]
  - Trigger finger [Unknown]
  - Abdominal pain upper [Unknown]
  - Vomiting [Unknown]
  - Intervertebral disc degeneration [Unknown]
  - Back pain [Unknown]
  - Eye pruritus [Unknown]
  - Eye discharge [Unknown]
  - Hyperthyroidism [Unknown]
  - Blood cholesterol increased [Unknown]
  - Hypertension [Unknown]
  - Therapeutic product effect incomplete [Unknown]
  - Gastrooesophageal reflux disease [Unknown]
  - Nausea [Unknown]
  - Adrenomegaly [Unknown]
  - Aortic arteriosclerosis [Unknown]
  - Aortic arteriosclerosis [Unknown]
  - Chronic kidney disease [Unknown]
  - Vertebral osteophyte [Unknown]
  - Angina pectoris [Unknown]
  - Blood pressure diastolic decreased [Unknown]
  - Bladder disorder [Unknown]
  - Hyperplasia adrenal [Unknown]
  - Oesophageal stenosis [Unknown]
  - Gastrointestinal disorder [Unknown]
  - Facet joint syndrome [Unknown]
  - Oedema [Recovering/Resolving]
  - Frequent bowel movements [Unknown]
  - Granuloma [Unknown]
  - Pleural calcification [Unknown]
  - Pulmonary bulla [Unknown]
  - Atelectasis [Unknown]
  - Pancreatic atrophy [Unknown]
  - Pancreatic calcification [Unknown]
  - Diverticulum intestinal [Recovered/Resolved]
  - Spinal osteoarthritis [Recovered/Resolved]

NARRATIVE: CASE EVENT DATE: 20250101
